FAERS Safety Report 4693673-X (Version None)
Quarter: 2005Q2

REPORT INFORMATION
  Report Type: 
  Country: None (occurrence: None)
  Receive Date: 20050617
  Receipt Date: 20050608
  Transmission Date: 20051028
  Serious: Yes (Hospitalization)
  Sender: FDA-Public Use
  Company Number: 2005UW08912

PATIENT
  Sex: Female

DRUGS (1)
  1. ZOLADEX [Suspect]
     Indication: ENDOMETRIOSIS
     Route: 058
     Dates: start: 20050411

REACTIONS (5)
  - BONE PAIN [None]
  - BURNING SENSATION [None]
  - HYPOAESTHESIA [None]
  - PAIN [None]
  - PRURITUS [None]
